FAERS Safety Report 12788099 (Version 1)
Quarter: 2016Q3

REPORT INFORMATION
  Report Type: Spontaneous
  Country: US (occurrence: US)
  Receive Date: 20160928
  Receipt Date: 20160928
  Transmission Date: 20161109
  Serious: No
  Sender: FDA-Public Use
  Company Number: US-INCYTE CORPORATION-2016IN005904

PATIENT
  Sex: Male

DRUGS (2)
  1. JAKAFI [Suspect]
     Active Substance: RUXOLITINIB
     Indication: MYELOFIBROSIS
     Dosage: 10 MG QAM AND 5 MG QPM
     Route: 048
     Dates: start: 20160607
  2. JAKAFI [Suspect]
     Active Substance: RUXOLITINIB
     Dosage: DOSE INCREASE
     Route: 048

REACTIONS (1)
  - Nodule [Unknown]
